FAERS Safety Report 6368357-2 (Version None)
Quarter: 2009Q3

REPORT INFORMATION
  Report Type: 
  Country: None (occurrence: None)
  Receive Date: 20090909
  Receipt Date: 20090714
  Transmission Date: 20100115
  Serious: No
  Sender: FDA-Public Use
  Company Number: 001283

PATIENT
  Sex: Female
  Weight: 86.1 kg

DRUGS (7)
  1. ROTIGOTINE [Suspect]
     Indication: PARKINSON'S DISEASE
     Dosage: (6 MG QD TRANSDERMAL), (4 MG QD TRANSDERMAL) , (2 MG QD TRANSDERMAL)
     Route: 062
     Dates: start: 20071001
  2. ROTIGOTINE [Suspect]
     Indication: PARKINSON'S DISEASE
     Dosage: (6 MG QD TRANSDERMAL), (4 MG QD TRANSDERMAL) , (2 MG QD TRANSDERMAL)
     Route: 062
     Dates: start: 20090301
  3. MIRAPEX [Concomitant]
  4. AMANTADINE [Concomitant]
  5. CARBIDOPA-LEVODOPA [Concomitant]
  6. SELEGILINE HCL [Concomitant]
  7. TRIAMTERENE AND HYDROCHLOROTHIAZIDE [Concomitant]

REACTIONS (1)
  - DYSKINESIA [None]
